FAERS Safety Report 9350703 (Version 1)
Quarter: 2013Q2

REPORT INFORMATION
  Report Type: Spontaneous
  Country: US (occurrence: US)
  Receive Date: 20130617
  Receipt Date: 20130617
  Transmission Date: 20140414
  Serious: Yes (Other)
  Sender: FDA-Public Use
  Company Number: PHEH2013US012725

PATIENT
  Sex: Female

DRUGS (4)
  1. EXFORGE HCT [Suspect]
     Dosage: UNK UKN, UNK
  2. METFORMIN [Concomitant]
     Dosage: UNK UKN, UNK
  3. GLYBURIDE [Concomitant]
     Dosage: UNK UKN, UNK
  4. PRAVASTATIN [Concomitant]
     Dosage: UNK UKN, UNK

REACTIONS (2)
  - Glaucoma [Unknown]
  - Visual impairment [Unknown]
